FAERS Safety Report 7676602 (Version 5)
Quarter: 2013Q4

REPORT INFORMATION
  Report Type: Spontaneous
  Country: IE (occurrence: IE)
  Receive Date: 20101119
  Receipt Date: 20131210
  Transmission Date: 20140711
  Serious: Yes (Hospitalization, Other)
  Sender: FDA-Public Use
  Company Number: IE-PURDUE-GBR-2010-0007326

PATIENT
  Sex: Male

DRUGS (3)
  1. OXYCONTIN TABLETS [Suspect]
     Indication: NEURALGIA
     Dosage: 120 MG, DAILY
     Route: 065
  2. OXYNORM CAPSULES [Suspect]
     Indication: NEURALGIA
     Dosage: 60 MG, DAILY
     Route: 065
  3. LYRICA [Concomitant]

REACTIONS (12)
  - Drug withdrawal syndrome [Recovered/Resolved]
  - Peripheral circulatory failure [Unknown]
  - Respiratory failure [Recovered/Resolved]
  - Visual acuity reduced [Unknown]
  - Ulcer [Unknown]
  - Cough [Unknown]
  - Memory impairment [Not Recovered/Not Resolved]
  - Constipation [Unknown]
  - Pain [Unknown]
  - Immobilisation prolonged [Recovered/Resolved]
  - Paralysis [Recovered/Resolved]
  - Hyperhidrosis [Unknown]
